FAERS Safety Report 4524417-X (Version None)
Quarter: 2004Q4

REPORT INFORMATION
  Report Type: 
  Country: None (occurrence: None)
  Receive Date: 20041119
  Receipt Date: 20040115
  Transmission Date: 20050328
  Serious: Yes (Death, Life-Threatening)
  Sender: FDA-Public Use
  Company Number: MSER20040002

PATIENT
  Age: 36 Year
  Sex: Male

DRUGS (3)
  1. MORPHINE SULFATE-ER  100MG [Suspect]
     Dosage: PO
     Route: 048
     Dates: start: 20020101, end: 20020101
  2. PERCOCET [Suspect]
     Dosage: PO
     Route: 048
     Dates: start: 20020101, end: 20020101
  3. COCAINE [Suspect]
     Dates: start: 20020101, end: 20020101

REACTIONS (4)
  - CARDIO-RESPIRATORY ARREST [None]
  - CORONARY ARTERY DISEASE [None]
  - DRUG TOXICITY [None]
  - PULMONARY CONGESTION [None]
